FAERS Safety Report 9206896 (Version 2)
Quarter: 2014Q1

REPORT INFORMATION
  Report Type: Spontaneous
  Country: US (occurrence: US)
  Receive Date: 20130403
  Receipt Date: 20140114
  Transmission Date: 20141002
  Serious: Yes (Other)
  Sender: FDA-Public Use
  Company Number: US-BAYER-2013-041264

PATIENT
  Age: 36 Year
  Sex: Female

DRUGS (5)
  1. YAZ [Suspect]
     Dosage: UNK
     Dates: start: 20100109
  2. YASMIN [Suspect]
     Dosage: UNK
     Dates: start: 20100109
  3. OCELLA [Suspect]
     Dosage: UNK
     Dates: start: 20100109
  4. GIANVI [Suspect]
     Dosage: UNK
     Dates: start: 20100109
  5. BUPROPION HYDROCHLORIDE [Concomitant]
     Dosage: 300 MG, UNK

REACTIONS (9)
  - Gallbladder injury [None]
  - Cholecystitis chronic [None]
  - Deep vein thrombosis [None]
  - Injury [None]
  - Pain [None]
  - General physical health deterioration [None]
  - Emotional distress [None]
  - Anxiety [None]
  - Pain [None]
